FAERS Safety Report 4691610-5 (Version None)
Quarter: 2005Q2

REPORT INFORMATION
  Report Type: 
  Country: None (occurrence: None)
  Receive Date: 20050608
  Receipt Date: 20040804
  Transmission Date: 20051028
  Serious: Yes (Other)
  Sender: FDA-Public Use
  Company Number: 351406

PATIENT
  Sex: Female
  Weight: 2.9 kg

DRUGS (3)
  1. ACCUTANE [Suspect]
     Indication: DRUG USE FOR UNKNOWN INDICATION
     Dosage: ORAL
     Route: 048
     Dates: start: 20020903, end: 20030215
  2. CONTRACEPTIVE (CONTRACEPTIVE NOS) [Concomitant]
  3. PRENATAL VITAMINS (MINERALS NOS/MULTIVITAMIN NOS) [Concomitant]

REACTIONS (1)
  - CANDIDIASIS [None]
